FAERS Safety Report 4708851-0 (Version None)
Quarter: 2005Q3

REPORT INFORMATION
  Report Type: 
  Country: None (occurrence: None)
  Receive Date: 20050707
  Receipt Date: 20050624
  Transmission Date: 20060218
  Serious: Yes (Hospitalization)
  Sender: FDA-Public Use
  Company Number: 2005-130045-NL

PATIENT
  Age: 36 Year
  Sex: Female

DRUGS (1)
  1. DANAPAROID SODIUM [Suspect]
     Route: 058
     Dates: start: 20050321, end: 20050324

REACTIONS (5)
  - BRADYCARDIA [None]
  - HYPOTENSION [None]
  - NAUSEA [None]
  - SYNCOPE VASOVAGAL [None]
  - THERAPY NON-RESPONDER [None]
